FAERS Safety Report 15560633 (Version 1)
Quarter: 2018Q4

REPORT INFORMATION
  Report Type: Spontaneous
  Country: US (occurrence: US)
  Receive Date: 20181029
  Receipt Date: 20181029
  Transmission Date: 20190205
  Serious: Yes (Other)
  Sender: FDA-Public Use
  Company Number: None

PATIENT
  Age: 72 Year
  Sex: Female
  Weight: 96.75 kg

DRUGS (9)
  1. OLIVE LEAF EXTRACT [Concomitant]
  2. VIT B 12 [Concomitant]
  3. FOLIC ACID. [Concomitant]
     Active Substance: FOLIC ACID
  4. VIT B-6 [Concomitant]
  5. QUINAPRIL. [Suspect]
     Active Substance: QUINAPRIL
     Indication: HYPERTENSION
     Dosage: ?          QUANTITY:1 TABLET(S);?
     Route: 048
  6. SYNTHROID [Concomitant]
     Active Substance: LEVOTHYROXINE SODIUM
  7. CANDIDA [Concomitant]
     Active Substance: CANDIDA ALBICANS
  8. PRAVASTATIN. [Concomitant]
     Active Substance: PRAVASTATIN
  9. ALLEGRA 24 HR [Concomitant]

REACTIONS (5)
  - Pruritus [None]
  - Joint swelling [None]
  - Blood pressure inadequately controlled [None]
  - Urticaria [None]
  - Product substitution issue [None]

NARRATIVE: CASE EVENT DATE: 20181015
